FAERS Safety Report 13924715 (Version 6)
Quarter: 2017Q4

REPORT INFORMATION
  Report Type: Report from Study
  Country: FR (occurrence: FR)
  Receive Date: 20170831
  Receipt Date: 20171208
  Transmission Date: 20180320
  Serious: Yes (Hospitalization)
  Sender: FDA-Public Use
  Company Number: FR-EMD SERONO-E2B_80066303

PATIENT
  Age: 52 Year
  Sex: Female
  Weight: 39 kg

DRUGS (6)
  1. AVELUMAB [Suspect]
     Active Substance: AVELUMAB
     Indication: ADENOCARCINOMA GASTRIC
     Route: 042
     Dates: start: 20161012, end: 20170824
  2. OROCAL                             /00944201/ [Concomitant]
     Active Substance: CALCIUM CARBONATE\CHOLECALCIFEROL
     Indication: HYPOTHYROIDISM
     Dosage: 500 MG
     Dates: start: 2000
  3. LEVOTHYROX [Concomitant]
     Active Substance: LEVOTHYROXINE
  4. INEXIUM                            /01479302/ [Concomitant]
     Active Substance: ESOMEPRAZOLE MAGNESIUM
     Indication: ABDOMINAL PAIN UPPER
     Dates: start: 2015, end: 201611
  5. LEVOTHYROX [Concomitant]
     Active Substance: LEVOTHYROXINE
     Indication: HYPOTHYROIDISM
     Dates: start: 2000
  6. LEVOTHYROX [Concomitant]
     Active Substance: LEVOTHYROXINE

REACTIONS (2)
  - Lymphadenopathy mediastinal [Recovered/Resolved]
  - Decreased appetite [Recovered/Resolved]

NARRATIVE: CASE EVENT DATE: 20170216
